FAERS Safety Report 6727477-0 (Version None)
Quarter: 2010Q2

REPORT INFORMATION
  Report Type: 
  Country: None (occurrence: None)
  Receive Date: 20100517
  Receipt Date: 20100506
  Transmission Date: 20101027
  Serious: Yes (Other)
  Sender: FDA-Public Use
  Company Number: US-SANOFI-AVENTIS-2010SA026694

PATIENT
  Age: 49 Year
  Sex: Male

DRUGS (7)
  1. MULTAQ [Suspect]
     Indication: ATRIAL FIBRILLATION
     Route: 048
     Dates: start: 20100505
  2. PLAVIX [Concomitant]
  3. ECOTRIN [Concomitant]
  4. LISINOPRIL [Concomitant]
  5. LOPRESSOR [Concomitant]
  6. XANAX [Concomitant]
  7. NEXIUM /UNK/ [Concomitant]

REACTIONS (2)
  - ATRIAL FIBRILLATION [None]
  - DIARRHOEA [None]
